FAERS Safety Report 4426180-X (Version None)
Quarter: 2004Q3

REPORT INFORMATION
  Report Type: 
  Country: None (occurrence: None)
  Receive Date: 20040811
  Receipt Date: 20040806
  Transmission Date: 20050211
  Serious: Yes (Other)
  Sender: FDA-Public Use
  Company Number: US-GDP-0411022

PATIENT
  Age: 47 Year
  Sex: Male

DRUGS (2)
  1. METROGEL [Suspect]
     Indication: ROSACEA
     Dosage: 1 APP QD TP
     Route: 061
     Dates: start: 19930101, end: 20020101
  2. ZOLOFT [Concomitant]

REACTIONS (4)
  - ERECTILE DYSFUNCTION [None]
  - NEUROPATHY PERIPHERAL [None]
  - PERIPHERAL SENSORY NEUROPATHY [None]
  - RESTLESS LEGS SYNDROME [None]
